FAERS Safety Report 6948100 (Version 26)
Quarter: 2014Q2

REPORT INFORMATION
  Report Type: Spontaneous
  Country: US (occurrence: US)
  Receive Date: 20090323
  Receipt Date: 20140613
  Transmission Date: 20141212
  Serious: Yes (Death, Hospitalization, Other)
  Sender: FDA-Public Use
  Company Number: PHEH2009US02712

PATIENT
  Age: 77 Year
  Sex: Male

DRUGS (64)
  1. GABAPENTIN [Concomitant]
     Dosage: 600 MG, TID
  2. LISINOPRIL [Concomitant]
     Dosage: 2.5 MG, QD
  3. NASONEX [Concomitant]
  4. PROTONIX ^PHARMACIA^ [Concomitant]
     Dosage: 40 MG, QD
  5. SPIRIVA [Concomitant]
  6. ALBUTEROL [Concomitant]
  7. AMITRIPTYLINE [Concomitant]
  8. DEXAMETHASONE [Concomitant]
     Dates: end: 20100429
  9. CARAZOLOL [Concomitant]
     Dosage: 3.125 MG, BID
  10. MIRALAX [Concomitant]
  11. POTASSIUM [Concomitant]
     Dosage: 30 MEQ, QD
  12. MEXILETINE [Concomitant]
     Dosage: 200 MG, TID
  13. DIOVAN [Concomitant]
     Dosage: 180 MG
  14. ALLEGRA [Concomitant]
  15. ADVAIR [Concomitant]
  16. CYCLOPHOSPHAMIDE [Concomitant]
     Dosage: 100 MG, QD
  17. AMLODIPINE [Concomitant]
     Dosage: 10 MG
  18. CYTOXAN [Concomitant]
     Dosage: 100 MG, QD
  19. METFORMIN [Concomitant]
     Dosage: 500 MG
  20. VALSARTAN [Concomitant]
     Dosage: 80 MG, QD
  21. FLONASE [Concomitant]
  22. FOLTX [Concomitant]
  23. FOLATE SODIUM [Concomitant]
  24. SYMBICORT [Concomitant]
  25. VENTOLIN [Concomitant]
  26. AZELASTINE [Concomitant]
  27. CARVEDILOL [Concomitant]
     Dosage: 3.125 MG, BID
     Route: 048
  28. DOCUSATE SODIUM [Concomitant]
     Dosage: 100 MG, BID
  29. PANTOPRAZOLE SODIUM [Concomitant]
     Dosage: 40 MG
  30. TEMAZEPAM [Concomitant]
     Dosage: 15 MG
  31. NYSTATIN [Concomitant]
  32. TUSSIONEX PENNKINETIC [Concomitant]
  33. METOLAZONE [Concomitant]
     Dosage: 2.5 MG
  34. ZOMETA [Suspect]
     Dosage: 4 MG, QMO
     Route: 042
     Dates: start: 20030421, end: 20041013
  35. AREDIA [Suspect]
  36. PROCRIT                            /00909301/ [Concomitant]
  37. ALKERAN [Concomitant]
  38. PREDNISOLONE [Concomitant]
  39. LIPITOR                                 /UNK/ [Concomitant]
  40. VASOTEC [Concomitant]
  41. THALIDOMIDE [Concomitant]
  42. ATENOLOL [Concomitant]
  43. NORVASC                                 /DEN/ [Concomitant]
  44. LASIX [Concomitant]
  45. REQUIP [Concomitant]
  46. LYRICA [Concomitant]
  47. TENORMIN [Concomitant]
  48. FOLIC ACID [Concomitant]
  49. SOTALOL [Concomitant]
  50. ASPIRIN ^BAYER^ [Concomitant]
  51. REVLIMID [Concomitant]
     Dates: end: 20100429
  52. PROCRIT [Concomitant]
     Dates: start: 20030421
  53. PREDNISONE [Concomitant]
     Dates: start: 20030421
  54. MOTRIN [Concomitant]
  55. ACTOS [Concomitant]
  56. HYDROCHLOROTHIAZIDE [Concomitant]
  57. HYDROCODONE [Concomitant]
  58. GLUCOTROL [Concomitant]
  59. FLUCONAZOLE [Concomitant]
  60. ACYCLOVIR [Concomitant]
  61. DULCOLAX [Concomitant]
  62. PLAVIX [Concomitant]
     Dosage: 75 MG, QD
  63. VITAMIN E [Concomitant]
  64. NEURONTIN [Concomitant]
     Dosage: 600 MG, TID

REACTIONS (159)
  - Ventricular fibrillation [Fatal]
  - Cardiac failure congestive [Unknown]
  - Interstitial lung disease [Unknown]
  - Bronchiectasis [Unknown]
  - Pleural effusion [Unknown]
  - Cough [Unknown]
  - Emphysema [Unknown]
  - Dyspnoea [Unknown]
  - Chest discomfort [Unknown]
  - Nephrolithiasis [Unknown]
  - Diabetes mellitus [Unknown]
  - Neuropathy peripheral [Unknown]
  - Hypoaesthesia [Unknown]
  - Paraesthesia [Unknown]
  - Restless legs syndrome [Unknown]
  - Muscle spasms [Unknown]
  - Osteonecrosis of jaw [Recovering/Resolving]
  - Pain [Unknown]
  - Infection [Unknown]
  - Deformity [Unknown]
  - Fibrosis [Unknown]
  - Swelling face [Unknown]
  - Erythema [Unknown]
  - Toothache [Unknown]
  - Dental caries [Unknown]
  - Tooth abscess [Unknown]
  - Macular hole [Unknown]
  - Pancytopenia [Unknown]
  - Neutropenia [Unknown]
  - Diverticulum [Unknown]
  - Exostosis [Unknown]
  - Visual acuity reduced [Recovering/Resolving]
  - Intervertebral disc degeneration [Unknown]
  - Facet joint syndrome [Unknown]
  - Atelectasis [Unknown]
  - Cataract [Unknown]
  - Iritis [Unknown]
  - Retinitis [Unknown]
  - Insomnia [Unknown]
  - Peripheral swelling [Unknown]
  - Pulmonary mass [Unknown]
  - Myocardial ischaemia [Unknown]
  - Oropharyngeal pain [Unknown]
  - Anaemia [Unknown]
  - Weight increased [Unknown]
  - Acute sinusitis [Unknown]
  - Lung hyperinflation [Unknown]
  - Upper limb fracture [Unknown]
  - Upper respiratory tract infection [Unknown]
  - Productive cough [Unknown]
  - Sputum purulent [Unknown]
  - Wheezing [Unknown]
  - Respiratory distress [Unknown]
  - Presyncope [Unknown]
  - Constipation [Unknown]
  - Pulmonary fibrosis [Unknown]
  - Sleep apnoea syndrome [Unknown]
  - Conjunctival haemorrhage [Unknown]
  - Pallor [Unknown]
  - Aortic calcification [Unknown]
  - Cardiomegaly [Unknown]
  - Left ventricular dysfunction [Unknown]
  - Palpitations [Unknown]
  - Lymphadenopathy mediastinal [Unknown]
  - Hilar lymphadenopathy [Unknown]
  - Arteriosclerosis coronary artery [Unknown]
  - Ventricular arrhythmia [Unknown]
  - Idiopathic pulmonary fibrosis [Unknown]
  - Pulmonary congestion [Unknown]
  - Hypoxia [Unknown]
  - Rhinitis allergic [Unknown]
  - Snoring [Unknown]
  - Leukopenia [Unknown]
  - Abdominal pain [Unknown]
  - Inguinal hernia [Unknown]
  - Keratoacanthoma [Unknown]
  - Hypokalaemia [Unknown]
  - Bradycardia [Unknown]
  - Pulmonary hypertension [Unknown]
  - Ischaemic cardiomyopathy [Unknown]
  - Hydronephrosis [Unknown]
  - Calculus ureteric [Unknown]
  - Prostatomegaly [Unknown]
  - Ileus [Unknown]
  - Small intestinal obstruction [Unknown]
  - Malignant melanoma [Unknown]
  - Thrombocytopenia [Unknown]
  - Obesity [Unknown]
  - Keratitis [Unknown]
  - Optic atrophy [Unknown]
  - Peripheral vascular disorder [Unknown]
  - Bronchial hyperreactivity [Unknown]
  - Arthralgia [Unknown]
  - Gingival abscess [Unknown]
  - Dysplastic naevus [Unknown]
  - Melanocytic naevus [Unknown]
  - Spinal osteoarthritis [Unknown]
  - Mitral valve incompetence [Unknown]
  - Tricuspid valve incompetence [Unknown]
  - Pulmonary valve incompetence [Unknown]
  - Left ventricular hypertrophy [Unknown]
  - Left atrial dilatation [Unknown]
  - Aortic valve sclerosis [Unknown]
  - Mitral valve calcification [Unknown]
  - Ejection fraction decreased [Unknown]
  - Electrocardiogram QT prolonged [Unknown]
  - Atrioventricular block first degree [Unknown]
  - Anxiety [Unknown]
  - Hepatic steatosis [Unknown]
  - Gastrooesophageal reflux disease [Unknown]
  - Dyslipidaemia [Unknown]
  - Cardiac arrest [Unknown]
  - Joint effusion [Unknown]
  - Bronchitis [Unknown]
  - Orthopnoea [Unknown]
  - Respiratory failure [Unknown]
  - Cellulitis [Unknown]
  - Hypotension [Unknown]
  - Aneurysm [Unknown]
  - Transient ischaemic attack [Unknown]
  - Leukaemia [Unknown]
  - Flank pain [Unknown]
  - Osteomyelitis [Recovering/Resolving]
  - Post procedural infection [Unknown]
  - Oedema peripheral [Unknown]
  - Rhonchi [Unknown]
  - Orthostatic hypotension [Unknown]
  - Gait disturbance [Unknown]
  - Contusion [Unknown]
  - Asthenia [Unknown]
  - Exposed bone in jaw [Unknown]
  - Bone loss [Unknown]
  - Angina pectoris [Unknown]
  - Gingivitis [Unknown]
  - Peripheral sensory neuropathy [Unknown]
  - Intervertebral disc space narrowing [Unknown]
  - Osteoarthritis [Unknown]
  - Gingival swelling [Unknown]
  - Parkinson^s disease [Unknown]
  - Tremor [Unknown]
  - Oral cavity fistula [Unknown]
  - Gingival bleeding [Unknown]
  - Osteosclerosis [Unknown]
  - Scoliosis [Unknown]
  - Vascular calcification [Unknown]
  - Tooth infection [Unknown]
  - Cataract nuclear [Unknown]
  - Chest pain [Unknown]
  - Nasal congestion [Unknown]
  - Rhinorrhoea [Unknown]
  - Spinal deformity [Unknown]
  - Epistaxis [Unknown]
  - Pulmonary calcification [Unknown]
  - Oral herpes [Unknown]
  - Dizziness [Unknown]
  - Weight decreased [Unknown]
  - Dyspepsia [Unknown]
  - Malaise [Unknown]
  - Protein urine present [Unknown]
